FAERS Safety Report 9464969 (Version 1)
Quarter: 2013Q3

REPORT INFORMATION
  Report Type: Spontaneous
  Country: US (occurrence: US)
  Receive Date: 20130819
  Receipt Date: 20130819
  Transmission Date: 20140515
  Serious: Yes (Other)
  Sender: FDA-Public Use
  Company Number: US-BAYER-2013-097511

PATIENT
  Age: 72 Year
  Sex: Male

DRUGS (5)
  1. BAYER CHEWABLE LOW DOSE BABY ASPIRIN TABLET ORANGE [Suspect]
     Dosage: 81 MG, QD
  2. GINKGO BILOBA EXTRACT [Suspect]
     Dosage: 400 MG, QD
  3. VITAMIN C [Concomitant]
  4. VITAMIN E [Concomitant]
  5. CYANOCOBALAMIN [Concomitant]

REACTIONS (1)
  - Haematoma [Recovered/Resolved]
